FAERS Safety Report 5209760-3 (Version None)
Quarter: 2006Q4

REPORT INFORMATION
  Report Type: 
  Country: None (occurrence: None)
  Receive Date: 20061128
  Receipt Date: 20060712
  Transmission Date: 20070319
  Serious: Yes (Other)
  Sender: FDA-Public Use
  Company Number: 2006009989

PATIENT
  Age: 65 Year
  Sex: Male
  Weight: 73.4827 kg

DRUGS (8)
  1. TIKOSYN [Suspect]
     Indication: ATRIAL FIBRILLATION
     Dosage: 500 MCG (250 MCG, 1 IN 12 HR), ORAL
     Route: 048
     Dates: start: 20051206
  2. ALCOHOL (ETHANOL) [Suspect]
     Indication: ILL-DEFINED DISORDER
     Dosage: ORAL
     Route: 048
     Dates: start: 20060108, end: 20060108
  3. POTASSIUM (POTASSIUM) [Concomitant]
  4. MAGNESIUM (MAGNESIUM) [Concomitant]
  5. WARFARIN SODIUM [Concomitant]
  6. MULTI-VITAMINS [Concomitant]
  7. CLINDAMYCIN [Concomitant]
  8. VIAGRA [Suspect]

REACTIONS (6)
  - ALCOHOL INTERACTION [None]
  - COUGH [None]
  - ELECTROCARDIOGRAM QT PROLONGED [None]
  - HEART RATE INCREASED [None]
  - MEDICATION ERROR [None]
  - VISION BLURRED [None]
